FAERS Safety Report 9115851 (Version 1)
Quarter: 2013Q1

REPORT INFORMATION
  Report Type: Spontaneous
  Country: US (occurrence: US)
  Receive Date: 20130225
  Receipt Date: 20130225
  Transmission Date: 20140127
  Serious: Yes (Other)
  Sender: FDA-Public Use
  Company Number: US-GLAXOSMITHKLINE-A1008380A

PATIENT
  Age: 64 Year
  Sex: Male

DRUGS (12)
  1. SERETIDE [Suspect]
     Indication: ASTHMA
     Dosage: 1PUFF TWICE PER DAY
     Route: 055
     Dates: start: 20121121, end: 20121222
  2. SEREVENT [Suspect]
     Indication: ASTHMA
     Dosage: 1PUFF TWICE PER DAY
     Route: 055
     Dates: start: 200501, end: 201001
  3. MONTELUKAST [Concomitant]
  4. ENALAPRIL [Concomitant]
  5. DILTIAZEM [Concomitant]
  6. FUROSEMIDE [Concomitant]
  7. KLOR CON [Concomitant]
  8. PRO-AIR [Concomitant]
  9. NITROSTAT [Concomitant]
  10. ALBUTEROL NEBULIZER [Concomitant]
  11. XOPENEX [Concomitant]
  12. ALBUTEROL [Concomitant]

REACTIONS (5)
  - Angina pectoris [Recovered/Resolved]
  - Drug ineffective [Recovered/Resolved]
  - Asthma [Recovered/Resolved]
  - Product quality issue [Unknown]
  - Suspected counterfeit product [Unknown]
